FAERS Safety Report 18260803 (Version 4)
Quarter: 2020Q4

REPORT INFORMATION
  Report Type: Report from Study
  Country: None (occurrence: PA)
  Receive Date: 20200914
  Receipt Date: 20201022
  Transmission Date: 20210113
  Serious: Yes (Hospitalization)
  Sender: FDA-Public Use
  Company Number: PA-ABBVIE-20K-125-3557853-00

PATIENT
  Age: 31 Year
  Sex: Female
  Weight: 67 kg

DRUGS (1)
  1. HUMIRA [Suspect]
     Active Substance: ADALIMUMAB
     Indication: COLITIS ULCERATIVE
     Route: 058
     Dates: start: 20200307

REACTIONS (10)
  - Depression [Unknown]
  - Blood potassium decreased [Recovered/Resolved]
  - Family stress [Unknown]
  - Red blood cell sedimentation rate abnormal [Unknown]
  - Inflammatory marker increased [Recovered/Resolved]
  - Colitis ulcerative [Not Recovered/Not Resolved]
  - Haemoglobin decreased [Recovered/Resolved]
  - Drug ineffective [Unknown]
  - Alopecia [Not Recovered/Not Resolved]
  - Abdominal discomfort [Not Recovered/Not Resolved]

NARRATIVE: CASE EVENT DATE: 2020
